FAERS Safety Report 6228917-6 (Version None)
Quarter: 2009Q2

REPORT INFORMATION
  Report Type: 
  Country: None (occurrence: None)
  Receive Date: 20090615
  Receipt Date: 20090604
  Transmission Date: 20091009
  Serious: Yes (Death, Hospitalization, Other)
  Sender: FDA-Public Use
  Company Number: US-ROCHE-637220

PATIENT
  Age: 64 Year
  Sex: Male

DRUGS (3)
  1. MYCOPHENOLATE MOFETIL [Suspect]
     Route: 065
     Dates: start: 20051201
  2. TACROLIMUS [Suspect]
     Route: 065
     Dates: start: 20051201
  3. PREDNISONE [Suspect]
     Route: 065
     Dates: start: 20051201

REACTIONS (5)
  - AMERICAN TRYPANOSOMIASIS [None]
  - ATRIAL FLUTTER [None]
  - HEART TRANSPLANT REJECTION [None]
  - RENAL FAILURE [None]
  - TREMOR [None]
